FAERS Safety Report 12843542 (Version 4)
Quarter: 2017Q1

REPORT INFORMATION
  Report Type: Spontaneous
  Country: US (occurrence: US)
  Receive Date: 20161013
  Receipt Date: 20170119
  Transmission Date: 20170428
  Serious: No
  Sender: FDA-Public Use
  Company Number: US-BAYER-2016-196832

PATIENT
  Age: 80 Year
  Sex: Female
  Weight: 46.71 kg

DRUGS (10)
  1. GAS-X [Concomitant]
     Active Substance: DIMETHICONE
  2. OCUVITE [Concomitant]
     Active Substance: VITAMINS
  3. LUTEIN [Concomitant]
     Active Substance: LUTEIN
  4. MIRALAX [Suspect]
     Active Substance: POLYETHYLENE GLYCOL 3350
     Indication: GASTROINTESTINAL DISORDER
     Dosage: 1 DF, QD
     Route: 048
     Dates: start: 2009, end: 2016
  5. VITAMIN C [Concomitant]
     Active Substance: ASCORBIC ACID
  6. MIRALAX [Suspect]
     Active Substance: POLYETHYLENE GLYCOL 3350
     Indication: GASTROINTESTINAL MOTILITY DISORDER
  7. TUMS SMOOTH DISSOLVE [Concomitant]
  8. MULTIVITAMIN [Concomitant]
     Active Substance: VITAMINS
  9. VITAMIN D [Concomitant]
     Active Substance: CHOLECALCIFEROL
  10. BAYER ASPIRIN [Suspect]
     Active Substance: ASPIRIN

REACTIONS (4)
  - Product use issue [Unknown]
  - Underdose [Unknown]
  - Off label use [None]
  - Product use issue [None]

NARRATIVE: CASE EVENT DATE: 2008
